FAERS Safety Report 9443295 (Version 2)
Quarter: 2013Q3

REPORT INFORMATION
  Report Type: Spontaneous
  Country: US (occurrence: US)
  Receive Date: 20130806
  Receipt Date: 20130827
  Transmission Date: 20140515
  Serious: Yes (Other)
  Sender: FDA-Public Use
  Company Number: US-GLAXOSMITHKLINE-A1035419A

PATIENT
  Sex: 0

DRUGS (2)
  1. WELLBUTRIN [Suspect]
     Indication: DEPRESSION
     Dosage: 100MG THREE TIMES PER DAY
     Route: 064
     Dates: start: 201304
  2. NO CONCURRENT MEDICATION [Concomitant]

REACTIONS (3)
  - Sepsis neonatal [Unknown]
  - Neonatal tachypnoea [Unknown]
  - Foetal exposure during pregnancy [Unknown]
